FAERS Safety Report 5947060-4 (Version None)
Quarter: 2008Q4

REPORT INFORMATION
  Report Type: 
  Country: None (occurrence: None)
  Receive Date: 20081106
  Receipt Date: 20081028
  Transmission Date: 20090506
  Serious: Yes (Hospitalization)
  Sender: FDA-Public Use
  Company Number: 2008BI026408

PATIENT
  Age: 76 Year
  Sex: Female

DRUGS (3)
  1. AVONEX [Suspect]
     Indication: MULTIPLE SCLEROSIS
     Dosage: 30 UG; QW; IM, 30 UG; QW; IM
     Route: 030
     Dates: start: 20001201
  2. . [Concomitant]
  3. . [Concomitant]

REACTIONS (2)
  - DYSPNOEA [None]
  - LUNG NEOPLASM [None]
